FAERS Safety Report 5467662-1 (Version None)
Quarter: 2007Q3

REPORT INFORMATION
  Report Type: 
  Country: None (occurrence: None)
  Receive Date: 20070921
  Receipt Date: 20070906
  Transmission Date: 20080115
  Serious: Yes (Other)
  Sender: FDA-Public Use
  Company Number: DSA_30297_2007

PATIENT
  Age: 70 Year
  Sex: Female

DRUGS (11)
  1. DILTIAZEM [Suspect]
     Dosage: (120 MG BID ORAL)
     Route: 048
  2. ENALAPRIL MALEATE [Suspect]
     Dosage: (DF)
  3. MOXONIDINE [Concomitant]
  4. URAPIDIL [Concomitant]
  5. TORSEMIDE [Concomitant]
  6. ASPIRIN [Concomitant]
  7. ALLOPURINOL [Concomitant]
  8. CALCIUM [Concomitant]
  9. ROHYPNOL [Concomitant]
  10. NOVALGIN /00039501/ [Concomitant]
  11. OXAZEPAM [Concomitant]

REACTIONS (1)
  - HALLUCINATION [None]
